FAERS Safety Report 5093114-7 (Version None)
Quarter: 2006Q3

REPORT INFORMATION
  Report Type: 
  Country: None (occurrence: None)
  Receive Date: 20060828
  Receipt Date: 20060821
  Transmission Date: 20061208
  Serious: Yes (Other)
  Sender: FDA-Public Use
  Company Number: 2006100672

PATIENT
  Age: 6 Year
  Sex: Female
  Weight: 14.9687 kg

DRUGS (1)
  1. PURELL (ETHYL ALCOHOL) [Suspect]
     Dosage: ONCE, OPHTHALMIC
     Route: 047
     Dates: start: 20060818, end: 20060818

REACTIONS (7)
  - ACCIDENTAL EXPOSURE [None]
  - CHEMICAL BURNS OF EYE [None]
  - CONVULSION [None]
  - PAIN [None]
  - RETCHING [None]
  - STRESS [None]
  - TREMOR [None]
